FAERS Safety Report 6637186-4 (Version None)
Quarter: 2010Q1

REPORT INFORMATION
  Report Type: 
  Country: None (occurrence: None)
  Receive Date: 20100310
  Receipt Date: 20100226
  Transmission Date: 20100710
  Serious: Yes (Other)
  Sender: FDA-Public Use
  Company Number: 8053309

PATIENT
  Sex: Female
  Weight: 54 kg

DRUGS (14)
  1. CERTOLIZUMAB PEGOL (CERTOLIZUMAB PEGOL) [Suspect]
     Indication: RHEUMATOID ARTHRITIS
     Dosage: 400 MG 1X/2 WEEKS, SUBCUTANEOUS, 400 MG 1X/2 WEEKS, SUBCUTANEOUS, 200 MG 1X2 WEEKS, SUBCUTANEOUS
     Route: 058
     Dates: start: 20050825, end: 20060810
  2. CERTOLIZUMAB PEGOL (CERTOLIZUMAB PEGOL) [Suspect]
     Indication: RHEUMATOID ARTHRITIS
     Dosage: 400 MG 1X/2 WEEKS, SUBCUTANEOUS, 400 MG 1X/2 WEEKS, SUBCUTANEOUS, 200 MG 1X2 WEEKS, SUBCUTANEOUS
     Route: 058
     Dates: start: 20060824, end: 20080219
  3. CERTOLIZUMAB PEGOL (CERTOLIZUMAB PEGOL) [Suspect]
     Indication: RHEUMATOID ARTHRITIS
     Dosage: 400 MG 1X/2 WEEKS, SUBCUTANEOUS, 400 MG 1X/2 WEEKS, SUBCUTANEOUS, 200 MG 1X2 WEEKS, SUBCUTANEOUS
     Route: 058
     Dates: start: 20080220, end: 20090916
  4. METHOTREXATE [Concomitant]
  5. FOLIC ACID [Concomitant]
  6. PILOCARPINE HYDROCHLORIDE [Concomitant]
  7. ARTIFICIAL TEARS [Concomitant]
  8. MODURETIC 5-50 [Concomitant]
  9. ATENOLOL [Concomitant]
  10. CALCIUM CARBONATE [Concomitant]
  11. BLACKMORES MULITIVITAMINS AND MINERALS [Concomitant]
  12. IBANDRONATE SODIUM [Concomitant]
  13. CLONAZEPAM [Concomitant]
  14. SERTRALINE HCL [Concomitant]

REACTIONS (30)
  - ALANINE AMINOTRANSFERASE INCREASED [None]
  - ANXIETY [None]
  - ARTERIOSCLEROSIS [None]
  - ASPARTATE AMINOTRANSFERASE INCREASED [None]
  - ASTHENIA [None]
  - BLOOD UREA INCREASED [None]
  - CARDIOMEGALY [None]
  - CASTLEMAN'S DISEASE [None]
  - CEREBRAL ATROPHY [None]
  - CHILLS [None]
  - CYTOMEGALOVIRUS TEST POSITIVE [None]
  - DACRYOSTENOSIS ACQUIRED [None]
  - DEPRESSION [None]
  - DRY MOUTH [None]
  - EMPHYSEMA [None]
  - EPSTEIN-BARR VIRUS ANTIBODY POSITIVE [None]
  - GAMMA-GLUTAMYLTRANSFERASE INCREASED [None]
  - HEART RATE INCREASED [None]
  - HEPATOSPLENOMEGALY [None]
  - HYPERTENSION [None]
  - HYPOTENSION [None]
  - JOINT DISLOCATION [None]
  - LYMPHADENOPATHY [None]
  - ORAL CANDIDIASIS [None]
  - OSTEOARTHRITIS [None]
  - OSTEOPOROSIS [None]
  - PYREXIA [None]
  - RHEUMATOID ARTHRITIS [None]
  - SCOLIOSIS [None]
  - SPINAL OSTEOARTHRITIS [None]
